FAERS Safety Report 24694455 (Version 1)
Quarter: 2024Q4

REPORT INFORMATION
  Report Type: Spontaneous
  Country: US (occurrence: US)
  Receive Date: 20241204
  Receipt Date: 20241204
  Transmission Date: 20250115
  Serious: Yes (Death)
  Sender: PROCTER AND GAMBLE
  Company Number: US-PROCTER+GAMBLE-PH24009071

PATIENT
  Age: 65 Year
  Sex: Male

DRUGS (11)
  1. DOXYLAMINE SUCCINATE [Suspect]
     Active Substance: DOXYLAMINE SUCCINATE
     Dosage: UNK
  2. FENTANYL [Suspect]
     Active Substance: FENTANYL
     Dosage: CORRESPONDING METABOLITES
  3. METHAMPHETAMINE [Suspect]
     Active Substance: METHAMPHETAMINE
     Dosage: MAMP+M (CORRESPONDING METABOLITES)
  4. ACETYLFENTANYL [Suspect]
     Active Substance: ACETYLFENTANYL
     Dosage: UNK
  5. HYDROMORPHONE [Suspect]
     Active Substance: HYDROMORPHONE
     Dosage: UNK
  6. HERBALS\TETRAHYDROCANNABINOL UNSPECIFIED [Suspect]
     Active Substance: HERBALS\TETRAHYDROCANNABINOL UNSPECIFIED
     Dosage: UNK
  7. HEROIN [Suspect]
     Active Substance: DIAMORPHINE
     Dosage: CORRESPONDING METABOLITES
  8. COCAINE [Suspect]
     Active Substance: COCAINE
     Dosage: CORRESPONDING METABOLITES
  9. UNSPECIFIED INGREDIENT [Suspect]
     Active Substance: UNSPECIFIED INGREDIENT
     Dosage: UNK
  10. DEPROPIONYLFENTANYL [Suspect]
     Active Substance: DEPROPIONYLFENTANYL
     Dosage: UNK
  11. .BETA.-HYDROXYFENTANYL [Suspect]
     Active Substance: .BETA.-HYDROXYFENTANYL
     Dosage: UNK

REACTIONS (2)
  - Toxicity to various agents [Fatal]
  - Accidental overdose [Fatal]
